FAERS Safety Report 17505050 (Version 1)
Quarter: 2020Q1

REPORT INFORMATION
  Report Type: Report from Study
  Country: CO (occurrence: CO)
  Receive Date: 20200306
  Receipt Date: 20200306
  Transmission Date: 20200409
  Serious: Yes (Other)
  Sender: FDA-Public Use
  Company Number: CO-BRISTOL-MYERS SQUIBB COMPANY-BMS-2017-047708

PATIENT
  Age: 55 Year
  Sex: Female

DRUGS (2)
  1. PREDNISOLONE. [Concomitant]
     Active Substance: PREDNISOLONE
     Indication: PRODUCT USED FOR UNKNOWN INDICATION
     Route: 065
  2. ABATACEPT [Suspect]
     Active Substance: ABATACEPT
     Indication: RHEUMATOID ARTHRITIS
     Dosage: 125 MG, QWK
     Route: 058
     Dates: start: 20160401

REACTIONS (10)
  - Erythema [Unknown]
  - Headache [Recovering/Resolving]
  - Arthralgia [Unknown]
  - Labile blood pressure [Recovering/Resolving]
  - Pruritus [Unknown]
  - Infection [Unknown]
  - Swelling [Not Recovered/Not Resolved]
  - Conjunctivitis [Recovering/Resolving]
  - Product storage error [Recovered/Resolved]
  - Tuberculosis [Recovering/Resolving]

NARRATIVE: CASE EVENT DATE: 20170520
